FAERS Safety Report 8326639-9 (Version None)
Quarter: 2012Q2

REPORT INFORMATION
  Report Type: 
  Country: None (occurrence: None)
  Receive Date: 20120501
  Receipt Date: 20090916
  Transmission Date: 20120825
  Serious: No
  Sender: FDA-Public Use
  Company Number: US-TEVA-2009010429

PATIENT
  Sex: Female

DRUGS (1)
  1. NUVIGIL [Suspect]
     Route: 048
     Dates: start: 20090916

REACTIONS (5)
  - NAUSEA [None]
  - THROAT TIGHTNESS [None]
  - EUPHORIC MOOD [None]
  - HEADACHE [None]
  - DYSPHONIA [None]
